FAERS Safety Report 9401068 (Version 4)
Quarter: 2014Q2

REPORT INFORMATION
  Report Type: Report from Study
  Country: GB (occurrence: GB)
  Receive Date: 20130715
  Receipt Date: 20140507
  Transmission Date: 20141212
  Serious: Yes (Hospitalization)
  Sender: FDA-Public Use
  Company Number: GB-MERCK-1307GBR004217

PATIENT
  Age: 68 Year
  Sex: Male
  Weight: 111.3 kg

DRUGS (14)
  1. DEXAMETHASONE [Suspect]
     Indication: PLASMA CELL MYELOMA
     Dosage: 20 MG ORALLY ON DAYS ONE, TWO, FOUR, FIVE, EIGHT, NINE, 11 AND 12 EVERY 21 DAYS
     Route: 048
     Dates: start: 20130528
  2. BORTEZOMIB [Suspect]
     Indication: PLASMA CELL MYELOMA
     Dosage: 1.3 MG/M2 SUBCUTANEOUS ON DAYS ONE, FOUR, EIGHT AND 11 EVERY 21 DAYS
     Route: 058
     Dates: start: 20130528
  3. STUDY DRUG (UNSPECIFIED) [Suspect]
     Indication: PLASMA CELL MYELOMA
     Dosage: UNK
     Dates: start: 20130528
  4. PREGABALIN [Concomitant]
     Indication: NEURALGIA
     Dosage: UNK
     Dates: start: 20130528
  5. ACYCLOVIR [Concomitant]
     Indication: PROPHYLAXIS
     Dosage: UNK
     Dates: start: 20130528
  6. FLUCONAZOLE [Concomitant]
     Indication: PROPHYLAXIS
     Dosage: UNK
     Dates: start: 20130528
  7. OMEPRAZOLE [Concomitant]
     Indication: PROPHYLAXIS
     Dosage: UNK
     Dates: start: 20130528
  8. LEVOTHYROXINE SODIUM [Concomitant]
     Indication: THYROID DISORDER
     Dosage: UNK
     Dates: start: 2011
  9. NEUROBION [Concomitant]
     Dosage: UNK
     Dates: start: 20130117
  10. THYROHORMONE [Concomitant]
     Dosage: UNK
     Dates: start: 1999
  11. GENTAMICIN [Concomitant]
     Dosage: UNK
     Dates: start: 20130528
  12. CYMEVENE CAPSULES [Concomitant]
     Dosage: UNK
     Dates: start: 20130524
  13. PENRAZOLE [Concomitant]
     Dosage: UNK
     Dates: start: 20131120
  14. HEPARIN SODIUM [Concomitant]
     Dosage: UNK
     Dates: start: 20130412, end: 20130424

REACTIONS (5)
  - Peripheral sensory neuropathy [Recovering/Resolving]
  - Fall [Recovered/Resolved]
  - Back pain [Recovered/Resolved]
  - Pathological fracture [Recovered/Resolved]
  - Peripheral sensory neuropathy [Recovered/Resolved]
